FAERS Safety Report 7418493-4 (Version None)
Quarter: 2011Q2

REPORT INFORMATION
  Report Type: 
  Country: None (occurrence: None)
  Receive Date: 20110415
  Receipt Date: 20110411
  Transmission Date: 20111010
  Serious: Yes (Life-Threatening, Hospitalization)
  Sender: FDA-Public Use
  Company Number: FR-MERCK-1104FRA00057

PATIENT
  Age: 52 Year
  Sex: Male

DRUGS (57)
  1. HYDROXYZINE HYDROCHLORIDE [Concomitant]
     Route: 042
     Dates: start: 20100805, end: 20100805
  2. RASBURICASE [Concomitant]
     Route: 042
     Dates: start: 20100802, end: 20100803
  3. DAUNORUBICIN HYDROCHLORIDE [Suspect]
     Route: 042
     Dates: start: 20100823, end: 20100824
  4. VANCOMYCIN [Suspect]
     Route: 042
     Dates: start: 20100818, end: 20100910
  5. TRAMADOL HYDROCHLORIDE [Concomitant]
     Route: 042
     Dates: start: 20100801, end: 20101024
  6. ONDANSETRON HYDROCHLORIDE [Concomitant]
     Route: 042
     Dates: start: 20100823, end: 20100826
  7. PREDNISONE [Suspect]
     Route: 048
     Dates: start: 20100809, end: 20100822
  8. METHYLPREDNISOLONE ACETATE [Suspect]
     Route: 051
     Dates: start: 20100809, end: 20100826
  9. ACYCLOVIR [Suspect]
     Route: 042
     Dates: start: 20100818, end: 20100908
  10. CYTARABINE [Suspect]
     Route: 051
     Dates: start: 20100809, end: 20100826
  11. ALPRAZOLAM [Concomitant]
     Route: 048
     Dates: start: 20100814, end: 20100828
  12. ALUMINUM HYDROXIDE AND MAGNESIUM TRISILICATE [Concomitant]
     Route: 048
     Dates: start: 20100814, end: 20100819
  13. INSULIN DETEMIR [Concomitant]
     Route: 058
     Dates: start: 20101110
  14. AZTREONAM [Concomitant]
     Route: 051
     Dates: start: 20100813, end: 20100821
  15. PENTAMIDINE ISETHIONATE [Concomitant]
     Route: 055
     Dates: start: 20100812, end: 20100812
  16. ONDANSETRON HYDROCHLORIDE [Concomitant]
     Route: 042
     Dates: start: 20100809, end: 20100811
  17. LENOGRASTIM [Concomitant]
     Route: 058
     Dates: start: 20100826, end: 20100910
  18. VANCOMYCIN [Suspect]
     Route: 042
     Dates: start: 20100804, end: 20100805
  19. METHOTREXATE [Suspect]
     Route: 051
     Dates: start: 20100802, end: 20100826
  20. CLORAZEPATE DIPOTASSIUM [Concomitant]
     Route: 048
     Dates: start: 20100828, end: 20100829
  21. ALUMINUM HYDROXIDE AND MAGNESIUM TRISILICATE [Concomitant]
     Route: 048
     Dates: start: 20101017
  22. SCOPOLAMINE [Concomitant]
     Route: 065
     Dates: start: 20100901, end: 20100910
  23. ZOLPIDEM TARTRATE [Concomitant]
     Route: 048
     Dates: end: 20100910
  24. OXYCODONE HYDROCHLORIDE [Concomitant]
     Route: 042
     Dates: start: 20100821, end: 20100831
  25. EMEND [Suspect]
     Indication: PROPHYLAXIS OF NAUSEA AND VOMITING
     Route: 048
     Dates: start: 20100809, end: 20100820
  26. AMPHOTERICIN B AND CHOLESTEROL AND DISTEAROYLPHOSPHATIDYLGLYCEROL AND [Suspect]
     Route: 042
     Dates: start: 20100813, end: 20100914
  27. CYCLOPHOSPHAMIDE [Suspect]
     Indication: ACUTE LYMPHOCYTIC LEUKAEMIA
     Route: 042
     Dates: start: 20100809, end: 20100809
  28. VINCRISTINE SULFATE [Suspect]
     Route: 042
     Dates: start: 20100830, end: 20100830
  29. METOCLOPRAMIDE HYDROCHLORIDE [Concomitant]
     Route: 042
     Dates: start: 20100827, end: 20100910
  30. INSULIN LISPRO [Concomitant]
     Route: 065
     Dates: start: 20101001
  31. INSULIN DETEMIR [Concomitant]
     Route: 058
     Dates: start: 20101023, end: 20101109
  32. NEFOPAM HYDROCHLORIDE [Concomitant]
     Route: 042
     Dates: start: 20100804
  33. PENTAMIDINE ISETHIONATE [Concomitant]
     Route: 055
     Dates: start: 20100825, end: 20100825
  34. ASPARAGINASE (AS DRUG) [Suspect]
     Indication: ACUTE LYMPHOCYTIC LEUKAEMIA
     Route: 042
     Dates: start: 20100809, end: 20100906
  35. CYCLOPHOSPHAMIDE [Suspect]
     Route: 042
     Dates: start: 20100823, end: 20100826
  36. VINCRISTINE SULFATE [Suspect]
     Route: 042
     Dates: start: 20100816, end: 20100816
  37. INSULIN, NEUTRAL [Concomitant]
     Route: 042
     Dates: start: 20100908, end: 20100930
  38. OXAZEPAM [Concomitant]
     Route: 048
     Dates: end: 20100911
  39. OXAZEPAM [Concomitant]
     Route: 065
     Dates: start: 20101017
  40. OXYCODONE HYDROCHLORIDE [Concomitant]
     Route: 042
     Dates: start: 20100901, end: 20100905
  41. ONDANSETRON HYDROCHLORIDE [Concomitant]
     Route: 042
     Dates: start: 20100816, end: 20100816
  42. RASBURICASE [Concomitant]
     Route: 042
     Dates: start: 20100805, end: 20100806
  43. PREDNISONE [Suspect]
     Indication: ACUTE LYMPHOCYTIC LEUKAEMIA
     Route: 048
     Dates: start: 20100802, end: 20100808
  44. DAUNORUBICIN HYDROCHLORIDE [Suspect]
     Indication: ACUTE LYMPHOCYTIC LEUKAEMIA
     Route: 042
     Dates: start: 20100809, end: 20100811
  45. VINCRISTINE SULFATE [Suspect]
     Indication: ACUTE LYMPHOCYTIC LEUKAEMIA
     Route: 042
     Dates: start: 20100809, end: 20100809
  46. VINCRISTINE SULFATE [Suspect]
     Route: 042
     Dates: start: 20100823, end: 20100823
  47. VANCOMYCIN [Suspect]
     Route: 042
     Dates: start: 20100813, end: 20100817
  48. PHLOROGLUCINOL AND TRIMETHYLPHLOROGLUCINOL [Concomitant]
     Route: 042
     Dates: start: 20100804, end: 20101001
  49. METOCLOPRAMIDE HYDROCHLORIDE [Concomitant]
     Route: 042
     Dates: start: 20100920, end: 20100921
  50. INSULIN LISPRO [Concomitant]
     Route: 065
     Dates: end: 20100823
  51. OXYCODONE HYDROCHLORIDE [Concomitant]
     Route: 042
     Dates: start: 20100906, end: 20100908
  52. VALACYCLOVIR HYDROCHLORIDE [Suspect]
     Route: 048
     Dates: start: 20100813, end: 20100818
  53. OMEPRAZOLE [Suspect]
     Route: 042
     Dates: start: 20100803, end: 20100910
  54. CLORAZEPATE DIPOTASSIUM [Concomitant]
     Route: 048
     Dates: start: 20100804, end: 20100812
  55. INSULIN GLARGINE [Concomitant]
     Route: 058
  56. INSULIN DETEMIR [Concomitant]
     Route: 058
     Dates: start: 20101001, end: 20101022
  57. FUROSEMIDE [Concomitant]
     Route: 042
     Dates: start: 20100909, end: 20100910

REACTIONS (4)
  - THROMBOCYTOPENIA [None]
  - LEUKOPENIA [None]
  - DIABETES MELLITUS INADEQUATE CONTROL [None]
  - ANAEMIA [None]
